FAERS Safety Report 12133307 (Version 1)
Quarter: 2016Q1

REPORT INFORMATION
  Report Type: Spontaneous
  Country: US (occurrence: None)
  Receive Date: 20160229
  Receipt Date: 20160229
  Transmission Date: 20160526
  Serious: Yes (Disabling)
  Sender: FDA-Public Use
  Company Number: None

PATIENT
  Age: 54 Year
  Sex: Female
  Weight: 74.84 kg

DRUGS (11)
  1. MULTIHANCE [Suspect]
     Active Substance: GADOBENATE DIMEGLUMINE
     Indication: NUCLEAR MAGNETIC RESONANCE IMAGING
     Dosage: VEIN
  2. ASPIRIN. [Concomitant]
     Active Substance: ASPIRIN
  3. FLAXOIL [Concomitant]
  4. MULTIVITAMIN [Concomitant]
     Active Substance: VITAMINS
  5. PROLIA [Concomitant]
     Active Substance: DENOSUMAB
  6. VITAMIN D3 [Concomitant]
     Active Substance: CHOLECALCIFEROL
  7. VITAMIN B12 [Concomitant]
     Active Substance: CYANOCOBALAMIN
  8. OMNISCAN [Suspect]
     Active Substance: GADODIAMIDE
  9. ANASTROZOLE. [Concomitant]
     Active Substance: ANASTROZOLE
  10. CALCIUM [Concomitant]
     Active Substance: CALCIUM
  11. PROHANCE [Suspect]
     Active Substance: GADOTERIDOL

REACTIONS (4)
  - Contrast media reaction [None]
  - Neuropathy peripheral [None]
  - Bone pain [None]
  - Eye disorder [None]
